FAERS Safety Report 20163510 (Version 4)
Quarter: 2022Q1

REPORT INFORMATION
  Report Type: Other
  Country: US (occurrence: None)
  Receive Date: 20211209
  Receipt Date: 20220224
  Transmission Date: 20220423
  Serious: Yes (Hospitalization, Other)
  Sender: FDA-Public Use
  Company Number: US-ROCHE-2970373

PATIENT
  Age: 74 Year
  Sex: Female

DRUGS (1)
  1. OCREVUS [Suspect]
     Active Substance: OCRELIZUMAB
     Indication: Multiple sclerosis
     Dosage: SUBSEQUENT DOSE OF 600 MG , 6MONTHS
     Route: 065
     Dates: start: 20191106

REACTIONS (8)
  - COVID-19 [Unknown]
  - Rhinovirus infection [Recovered/Resolved]
  - Pneumonia [Unknown]
  - Pulmonary thrombosis [Unknown]
  - Dysstasia [Unknown]
  - Asthenia [Unknown]
  - Confusional state [Unknown]
  - Off label use [Unknown]

NARRATIVE: CASE EVENT DATE: 20211107
